FAERS Safety Report 4601325-7 (Version None)
Quarter: 2005Q1

REPORT INFORMATION
  Report Type: 
  Country: None (occurrence: None)
  Receive Date: 20050202
  Receipt Date: 20040729
  Transmission Date: 20050727
  Serious: Yes (Other)
  Sender: FDA-Public Use
  Company Number: 10059072-C561357-0

PATIENT
  Age: 77 Year
  Sex: Male

DRUGS (2)
  1. 2B1323Q - 0.9% SODIUM CHLORIDE INJECTION, USP [Suspect]
     Dosage: 500ML, IV
     Route: 042
     Dates: start: 20040729
  2. VANCOMYCIN [Concomitant]

REACTIONS (1)
  - MEDICATION ERROR [None]
